FAERS Safety Report 24296589 (Version 1)
Quarter: 2024Q3

REPORT INFORMATION
  Report Type: Spontaneous
  Country: DE (occurrence: DE)
  Receive Date: 20240909
  Receipt Date: 20240909
  Transmission Date: 20241017
  Serious: Yes (Hospitalization)
  Sender: REGENERON
  Company Number: DE-PEI-202400019060

PATIENT
  Age: 82 Year
  Sex: Female

DRUGS (1)
  1. LIBTAYO [Suspect]
     Active Substance: CEMIPLIMAB-RWLC
     Indication: Neoplasm malignant
     Dosage: 350 MG, 2 {DF}, Q3W
     Route: 065
     Dates: start: 20240719

REACTIONS (2)
  - Pneumonitis [Not Recovered/Not Resolved]
  - Interstitial lung disease [Not Recovered/Not Resolved]

NARRATIVE: CASE EVENT DATE: 20240801
